FAERS Safety Report 9679148 (Version 1)
Quarter: 2013Q4

REPORT INFORMATION
  Report Type: Spontaneous
  Country: ES (occurrence: ES)
  Receive Date: 20131108
  Receipt Date: 20131108
  Transmission Date: 20140711
  Serious: Yes (Other)
  Sender: FDA-Public Use
  Company Number: ES-ABBVIE-13P-144-1167073-00

PATIENT
  Age: 72 Year
  Sex: Female

DRUGS (6)
  1. DEPAKINE [Suspect]
     Indication: DIZZINESS
     Route: 048
     Dates: start: 201310, end: 201310
  2. DEPAKINE [Suspect]
     Indication: DEMENTIA
     Route: 048
     Dates: start: 201310, end: 20131030
  3. ARICEPT [Concomitant]
     Indication: PRODUCT USED FOR UNKNOWN INDICATION
  4. DEPRAX [Concomitant]
     Indication: PRODUCT USED FOR UNKNOWN INDICATION
  5. DOBUPAL [Concomitant]
     Indication: PRODUCT USED FOR UNKNOWN INDICATION
  6. ENANTYUM [Concomitant]
     Indication: PRODUCT USED FOR UNKNOWN INDICATION

REACTIONS (2)
  - Dysstasia [Not Recovered/Not Resolved]
  - Feeling abnormal [Not Recovered/Not Resolved]
